FAERS Safety Report 19572554 (Version 1)
Quarter: 2021Q3

REPORT INFORMATION
  Report Type: Spontaneous
  Country: US (occurrence: US)
  Receive Date: 20210716
  Receipt Date: 20210716
  Transmission Date: 20211014
  Serious: Yes (Other)
  Sender: FDA-Public Use
  Company Number: US-PFIZER INC-2021691200

PATIENT
  Age: 79 Year
  Sex: Female

DRUGS (3)
  1. IBRANCE [Suspect]
     Active Substance: PALBOCICLIB
     Dosage: 125 MG
     Dates: start: 20210310
  2. IBRANCE [Suspect]
     Active Substance: PALBOCICLIB
     Dosage: 125 MG
     Dates: start: 20210406
  3. IBRANCE [Suspect]
     Active Substance: PALBOCICLIB
     Dosage: 100 MG, DAILY

REACTIONS (5)
  - Haemoglobin decreased [Unknown]
  - Fatigue [Unknown]
  - Ear infection [Unknown]
  - Dyspnoea [Unknown]
  - Renal impairment [Unknown]

NARRATIVE: CASE EVENT DATE: 202106
